FAERS Safety Report 8321770-6 (Version None)
Quarter: 2012Q2

REPORT INFORMATION
  Report Type: 
  Country: None (occurrence: None)
  Receive Date: 20120426
  Receipt Date: 20120411
  Transmission Date: 20120825
  Serious: Yes (Death)
  Sender: FDA-Public Use
  Company Number: EU-2012-10110

PATIENT
  Sex: Female
  Weight: 50 kg

DRUGS (8)
  1. LEVOTHYROXINE SODIUM [Concomitant]
  2. TRIMETHOPRIM [Concomitant]
  3. PREDNISOLONE [Concomitant]
  4. FOLIC ACID [Concomitant]
  5. SAMSCA [Suspect]
     Indication: NEOPLASM
     Dosage: 15 MG MILLIGRAM(S),DAILY DOSE, ORAL
     Route: 048
     Dates: start: 20110719, end: 20110721
  6. SAMSCA [Suspect]
     Indication: INAPPROPRIATE ANTIDIURETIC HORMONE SECRETION
     Dosage: 15 MG MILLIGRAM(S),DAILY DOSE, ORAL
     Route: 048
     Dates: start: 20110719, end: 20110721
  7. SAMSCA [Suspect]
     Indication: HYPONATRAEMIA
     Dosage: 15 MG MILLIGRAM(S),DAILY DOSE, ORAL
     Route: 048
     Dates: start: 20110719, end: 20110721
  8. BISOPROLOL FUMARATE [Concomitant]

REACTIONS (1)
  - DEATH [None]
